FAERS Safety Report 6887753-8 (Version None)
Quarter: 2010Q3

REPORT INFORMATION
  Report Type: 
  Country: None (occurrence: None)
  Receive Date: 20100726
  Receipt Date: 20100716
  Transmission Date: 20110219
  Serious: Yes (Hospitalization)
  Sender: FDA-Public Use
  Company Number: 200100159BW

PATIENT
  Sex: Female

DRUGS (1)
  1. BERINERT [Suspect]

REACTIONS (2)
  - FOREIGN TRAVEL [None]
  - HEPATITIS B [None]
